FAERS Safety Report 7388163-X (Version None)
Quarter: 2011Q2

REPORT INFORMATION
  Report Type: 
  Country: None (occurrence: None)
  Receive Date: 20110401
  Receipt Date: 20101004
  Transmission Date: 20111010
  Serious: Yes (Hospitalization)
  Sender: FDA-Public Use
  Company Number: US-BAYER-201013092NA

PATIENT
  Sex: Female
  Weight: 154.55 kg

DRUGS (10)
  1. ALLEGRA [Concomitant]
     Indication: MULTIPLE ALLERGIES
     Dates: start: 20080101
  2. ADVAIR DISKUS 100/50 [Concomitant]
     Dates: start: 20080101
  3. UNCODEABLE ^INVESTIGATIONAL DRUG^ [Concomitant]
  4. YAZ [Suspect]
     Indication: MENSTRUAL CYCLE MANAGEMENT
     Route: 048
     Dates: start: 20050401, end: 20090201
  5. ZYRTEC [Concomitant]
     Indication: MULTIPLE ALLERGIES
     Dates: start: 20080101
  6. HYDROCHLOROTHIAZIDE [Concomitant]
     Indication: OEDEMA
     Dates: start: 20080101, end: 20090615
  7. NEXIUM [Concomitant]
     Dates: start: 20080101
  8. PREVACID [Concomitant]
     Indication: DYSPEPSIA
     Dates: start: 20080101, end: 20090615
  9. YASMIN [Suspect]
     Indication: MENSTRUAL CYCLE MANAGEMENT
     Route: 048
     Dates: start: 20050401, end: 20090201
  10. COREG [Concomitant]
     Indication: HYPERTENSION
     Dates: start: 20000101

REACTIONS (2)
  - PULMONARY EMBOLISM [None]
  - DEEP VEIN THROMBOSIS [None]
